FAERS Safety Report 13672706 (Version 2)
Quarter: 2017Q3

REPORT INFORMATION
  Report Type: Spontaneous
  Country: GB (occurrence: GB)
  Receive Date: 20170621
  Receipt Date: 20170818
  Transmission Date: 20171127
  Serious: Yes (Hospitalization, Other)
  Sender: FDA-Public Use
  Company Number: GB-BAXTER-2017BAX023799

PATIENT
  Age: 55 Year
  Sex: Male
  Weight: 65 kg

DRUGS (7)
  1. DESFERRIOXAMINE [Suspect]
     Active Substance: DEFEROXAMINE MESYLATE
     Indication: IRON OVERLOAD
     Dosage: (2000 MG), INFUSED OVER 10 HOURS
     Route: 058
     Dates: start: 20170520, end: 20170604
  2. SODIUM CHLORIDE 0.9% INTRAVENOUS INFUSION BP [Suspect]
     Active Substance: SODIUM CHLORIDE
     Indication: MEDICATION DILUTION
     Dosage: INFUSED OVER 10 HOURS
     Route: 058
     Dates: start: 20170520, end: 20170604
  3. AMOXICILLIN. [Concomitant]
     Active Substance: AMOXICILLIN
     Indication: PROPHYLAXIS
     Route: 065
  4. WATER FOR INJECTION [Suspect]
     Active Substance: WATER
     Indication: MEDICATION DILUTION
     Dosage: INFUSED OVER 10 HOURS
     Route: 058
     Dates: start: 20170520, end: 20170604
  5. FOLIC ACID. [Concomitant]
     Active Substance: FOLIC ACID
     Indication: DRUG THERAPY
     Route: 065
  6. ELTROMBOPAG [Concomitant]
     Active Substance: ELTROMBOPAG
     Indication: PLATELET COUNT DECREASED
     Route: 065
  7. ALLOPURINOL. [Concomitant]
     Active Substance: ALLOPURINOL
     Indication: GOUT
     Route: 065

REACTIONS (6)
  - Retinal disorder [Recovering/Resolving]
  - Maculopathy [Recovering/Resolving]
  - Immune thrombocytopenic purpura [Unknown]
  - Visual field defect [Recovering/Resolving]
  - Visual impairment [Recovering/Resolving]
  - Eye swelling [Recovering/Resolving]

NARRATIVE: CASE EVENT DATE: 20170604
